FAERS Safety Report 11814860 (Version 7)
Quarter: 2020Q4

REPORT INFORMATION
  Report Type: Spontaneous
  Country: US (occurrence: US)
  Receive Date: 20151209
  Receipt Date: 20201211
  Transmission Date: 20210113
  Serious: Yes (Disabling, Other)
  Sender: FDA-Public Use
  Company Number: US-SA-2015SA133246

PATIENT

DRUGS (6)
  1. TOUJEO [Suspect]
     Active Substance: INSULIN GLARGINE
     Indication: TYPE 2 DIABETES MELLITUS
     Dosage: 20 IU, QD
     Route: 065
     Dates: start: 2015
  2. TOUJEO [Suspect]
     Active Substance: INSULIN GLARGINE
     Dosage: INCREASING 2 IU EVERY 3-4 DAYS
     Route: 065
  3. TOUJEO [Suspect]
     Active Substance: INSULIN GLARGINE
     Dosage: 38 IU, HS
     Route: 065
  4. BYDUREON [Concomitant]
     Active Substance: EXENATIDE
     Dosage: UNK UNK,QW
     Route: 065
  5. TOUJEO [Suspect]
     Active Substance: INSULIN GLARGINE
     Dosage: 40 UNITS EACH DAY
     Route: 065
  6. NOVOLOG [Concomitant]
     Active Substance: INSULIN ASPART
     Dosage: UNK (SEVERAL TIMES A DAY)
     Route: 065

REACTIONS (14)
  - Intentional dose omission [Unknown]
  - Diabetes mellitus inadequate control [Unknown]
  - Blood glucose decreased [Unknown]
  - Nervous system disorder [Unknown]
  - Emotional disorder [Unknown]
  - Blood glucose increased [Unknown]
  - Multiple use of single-use product [Unknown]
  - Product dose omission issue [Unknown]
  - Eye disorder [Unknown]
  - Product storage error [Unknown]
  - Weight decreased [Unknown]
  - Device issue [Unknown]
  - Neoplasm malignant [Unknown]
  - Anxiety [Unknown]
